FAERS Safety Report 8395994-6 (Version None)
Quarter: 2012Q2

REPORT INFORMATION
  Report Type: 
  Country: None (occurrence: None)
  Receive Date: 20120530
  Receipt Date: 20120515
  Transmission Date: 20120825
  Serious: Yes (Other)
  Sender: FDA-Public Use
  Company Number: GB-WATSON-2012-09033

PATIENT
  Age: 69 Year
  Sex: Female
  Weight: 63 kg

DRUGS (10)
  1. ATORVASTATIN CALCIUM [Concomitant]
     Dosage: UNK
     Route: 065
     Dates: start: 20120131, end: 20120228
  2. FLUOXETINE [Concomitant]
     Indication: PRODUCT USED FOR UNKNOWN INDICATION
     Dosage: UNK
     Route: 065
     Dates: start: 20120424
  3. ATORVASTATIN CALCIUM [Concomitant]
     Dosage: UNK
     Route: 065
     Dates: start: 20120301, end: 20120423
  4. IBUPROFEN [Concomitant]
     Indication: PRODUCT USED FOR UNKNOWN INDICATION
     Dosage: UNK
     Route: 065
     Dates: start: 20120207, end: 20120306
  5. FLUOXETINE [Concomitant]
     Dosage: UNK
     Route: 065
     Dates: start: 20120131, end: 20120228
  6. OMEPRAZOLE [Suspect]
     Indication: PRODUCT USED FOR UNKNOWN INDICATION
     Dosage: UNK
     Route: 065
     Dates: start: 20120503
  7. ZOPICLONE [Concomitant]
     Indication: PRODUCT USED FOR UNKNOWN INDICATION
     Dosage: UNK
     Route: 065
     Dates: start: 20120503
  8. ATORVASTATIN CALCIUM [Concomitant]
     Indication: PRODUCT USED FOR UNKNOWN INDICATION
     Dosage: UNK
     Route: 065
     Dates: start: 20120424
  9. ZOPICLONE [Concomitant]
     Dosage: UNK
     Route: 065
     Dates: start: 20120207, end: 20120306
  10. FLUOXETINE [Concomitant]
     Dosage: UNK
     Route: 065
     Dates: start: 20120301, end: 20120423

REACTIONS (2)
  - LIP ULCERATION [None]
  - LIP BLISTER [None]
